FAERS Safety Report 11971460 (Version 1)
Quarter: 2016Q1

REPORT INFORMATION
  Report Type: Spontaneous
  Country: US (occurrence: US)
  Receive Date: 20160128
  Receipt Date: 20160128
  Transmission Date: 20160526
  Serious: No
  Sender: FDA-Public Use
  Company Number: US-009507513-1601USA007475

PATIENT
  Age: 70 Year
  Sex: Female
  Weight: 63.5 kg

DRUGS (18)
  1. LISINOPRIL. [Concomitant]
     Active Substance: LISINOPRIL
     Indication: BLOOD PRESSURE MEASUREMENT
     Dosage: 20 MG, DAILY
  2. REMERON [Suspect]
     Active Substance: MIRTAZAPINE
     Indication: DEPRESSION
     Dosage: UNK
     Route: 048
  3. CLONIDINE. [Concomitant]
     Active Substance: CLONIDINE
     Indication: SLEEP DISORDER
     Dosage: 0.1 MG DAILY; GIVEN TO HER TO TAKE HER OFF AMBIEN BECAUSE HER DOCTOR THOUGHT IT WAS
     Dates: start: 201501
  4. CHOLECALCIFEROL [Concomitant]
     Active Substance: CHOLECALCIFEROL
     Indication: ROUTINE HEALTH MAINTENANCE
     Dosage: THREE DAILY; CALLER HAS BEEN TAKING THIS FOREVER BECAUSE SHE DID NOT HAVE ANY VITAMIN D3 IN
  5. BIOTIN [Concomitant]
     Active Substance: BIOTIN
     Indication: NAIL DISORDER
     Dosage: TWO DAILY
     Dates: start: 201501
  6. ATORVASTAN [Concomitant]
     Indication: BLOOD CHOLESTEROL INCREASED
     Dosage: 40 MG, DAILY
     Dates: start: 2015
  7. WELLBUTRIN [Concomitant]
     Active Substance: BUPROPION HYDROCHLORIDE
     Indication: DEPRESSION
     Dosage: UNK
  8. EFFEXOR [Concomitant]
     Active Substance: VENLAFAXINE HYDROCHLORIDE
     Indication: DEPRESSION
     Dosage: 37.5 MG, UNK
     Route: 048
  9. TOPAMAX [Concomitant]
     Active Substance: TOPIRAMATE
     Indication: SLEEP DISORDER
     Dosage: 100 MG EVERY MORNING; CALLER HAS BEEN TAKING THIS FOR A COUPLE YEARS
  10. PAMINE [Concomitant]
     Active Substance: METHSCOPOLAMINE BROMIDE
     Dosage: 2.5 MG, BEFORE MEALS; SHE ONLY TAKES THIS IF SHE GOES OUT TO EAT, ALONG WITH THE DICYCLOMINE
  11. IMODIUM [Concomitant]
     Active Substance: LOPERAMIDE HYDROCHLORIDE
     Indication: DIARRHOEA
     Dosage: 2 MG DAILY
  12. DICYCLOMINE HYDROCHLORIDE. [Concomitant]
     Active Substance: DICYCLOMINE HYDROCHLORIDE
     Indication: ABDOMINAL PAIN
     Dosage: 10 MG AS NEEDED; SHE ONLY TAKES THIS IF SHE GOES OUT TO EAT, ALONG WITH THE PAMINE
     Dates: start: 20151117
  13. TRAZODONE HYDROCHLORIDE. [Concomitant]
     Active Substance: TRAZODONE HYDROCHLORIDE
     Indication: DEPRESSION
     Dosage: UNK
  14. PROZAC [Concomitant]
     Active Substance: FLUOXETINE HYDROCHLORIDE
     Dosage: UNK
  15. EFFEXOR [Concomitant]
     Active Substance: VENLAFAXINE HYDROCHLORIDE
     Dosage: 150 MG
  16. EFFEXOR [Concomitant]
     Active Substance: VENLAFAXINE HYDROCHLORIDE
     Dosage: ONE 75 MG CAPSULE BEFORE BREAKFAST
     Route: 048
     Dates: start: 2013
  17. EFFEXOR [Concomitant]
     Active Substance: VENLAFAXINE HYDROCHLORIDE
     Dosage: 150 MG, BID; BEFORE BREAKFAST WITH AN ADDITION 75 MG DOSE LATER IN THE DAY
     Route: 048
     Dates: start: 201512
  18. PRILOSEC [Concomitant]
     Active Substance: OMEPRAZOLE MAGNESIUM
     Dosage: 20 MG EVERY MORNING

REACTIONS (17)
  - Emotional disorder [Unknown]
  - Dyspepsia [Unknown]
  - Peripheral coldness [Unknown]
  - Nausea [Unknown]
  - Retching [Unknown]
  - Asthenia [Unknown]
  - Abdominal pain [Unknown]
  - Flushing [Unknown]
  - Eyelids pruritus [Unknown]
  - Hyperhidrosis [Unknown]
  - Palpitations [Unknown]
  - Feeling abnormal [Unknown]
  - Paraesthesia [Unknown]
  - Tremor [Unknown]
  - Feeling abnormal [Unknown]
  - Anger [Unknown]
  - Diarrhoea [Unknown]

NARRATIVE: CASE EVENT DATE: 20150103
